FAERS Safety Report 25429242 (Version 1)
Quarter: 2025Q2

REPORT INFORMATION
  Report Type: Spontaneous
  Country: US (occurrence: US)
  Receive Date: 20250612
  Receipt Date: 20250612
  Transmission Date: 20250716
  Serious: No
  Sender: PIERRE FABRE MEDICAMENT
  Company Number: US-PFM-2025-00540

PATIENT
  Sex: Female
  Weight: 6.2 kg

DRUGS (1)
  1. HEMANGEOL [Suspect]
     Active Substance: PROPRANOLOL HYDROCHLORIDE
     Indication: Haemangioma
     Dosage: 2 ML, BID (2/DAY)

REACTIONS (6)
  - Flushing [Unknown]
  - Abdominal discomfort [Unknown]
  - Mood altered [Unknown]
  - Illness [Unknown]
  - Infantile spitting up [Unknown]
  - Peripheral coldness [Unknown]
